FAERS Safety Report 4361842-4 (Version None)
Quarter: 2004Q2

REPORT INFORMATION
  Report Type: 
  Country: None (occurrence: None)
  Receive Date: 20040521
  Receipt Date: 20040323
  Transmission Date: 20050107
  Serious: No
  Sender: FDA-Public Use
  Company Number: US-GLAXOSMITHKLINE-A0504091A

PATIENT

DRUGS (1)
  1. WELLBUTRIN [Suspect]
     Dosage: 300MG PER DAY

REACTIONS (1)
  - INSOMNIA [None]
